FAERS Safety Report 9539422 (Version 2)
Quarter: 2013Q3

REPORT INFORMATION
  Report Type: Spontaneous
  Country: US (occurrence: US)
  Receive Date: 20130920
  Receipt Date: 20130920
  Transmission Date: 20140515
  Serious: Yes (Other)
  Sender: FDA-Public Use
  Company Number: US-SANOFI-AVENTIS-2013SA043088

PATIENT
  Age: 45 Year
  Sex: Male
  Weight: 93 kg

DRUGS (8)
  1. AUBAGIO [Suspect]
     Indication: PRODUCT USED FOR UNKNOWN INDICATION
     Dosage: STRENGTH: 14 MG
     Route: 048
  2. FAMPRIDINE [Concomitant]
     Dosage: STRENGTH: 10 MG
  3. ZANAFLEX [Concomitant]
     Dosage: STRENGTH: 2 MG
  4. BACLOFEN [Concomitant]
     Dosage: STRENGTH: 10 MG
  5. CALCIUM [Concomitant]
     Dosage: 600 TAB+D
  6. MULTIVITAMINS [Concomitant]
  7. FISH OIL [Concomitant]
  8. ZOLOFT [Concomitant]
     Dosage: STRENGTH: 25 MG

REACTIONS (2)
  - Multiple sclerosis [Unknown]
  - Burning sensation [Unknown]
